FAERS Safety Report 9338072 (Version 1)
Quarter: 2013Q2

REPORT INFORMATION
  Report Type: Spontaneous
  Country: NO (occurrence: NO)
  Receive Date: 20130610
  Receipt Date: 20130610
  Transmission Date: 20140414
  Serious: Yes (Life-Threatening)
  Sender: FDA-Public Use
  Company Number: NO-ROCHE-1233675

PATIENT
  Age: 42 Year
  Sex: Male

DRUGS (2)
  1. CELLCEPT [Suspect]
     Indication: PRODUCT USED FOR UNKNOWN INDICATION
     Dosage: DOSE OF CELLCEPT IS NOT STATED IN THE REPORT
     Route: 041
     Dates: start: 20130427, end: 20130427
  2. METHYLPREDNISOLONE [Concomitant]
     Indication: PROPHYLAXIS
     Route: 065
     Dates: start: 20130427, end: 20130427

REACTIONS (1)
  - Anaphylactic shock [Recovered/Resolved]
